FAERS Safety Report 20664665 (Version 1)
Quarter: 2022Q2

REPORT INFORMATION
  Report Type: Spontaneous
  Country: FR (occurrence: FR)
  Receive Date: 20220401
  Receipt Date: 20220401
  Transmission Date: 20220720
  Serious: Yes (Hospitalization, Other)
  Sender: FDA-Public Use
  Company Number: None

PATIENT
  Age: 9 Year
  Sex: Female
  Weight: 41.3 kg

DRUGS (17)
  1. ETOPOSIDE [Suspect]
     Active Substance: ETOPOSIDE
     Indication: Diffuse large B-cell lymphoma stage IV
     Dosage: 200 MILLIGRAM/SQ. METER, QOD
     Route: 042
     Dates: start: 20220129, end: 20220201
  2. METHOTREXATE [Suspect]
     Active Substance: METHOTREXATE
     Indication: Diffuse large B-cell lymphoma stage IV
     Dosage: 15 MILLIGRAM, QOD
     Route: 037
     Dates: start: 20211221, end: 20220128
  3. AMIKACIN SULFATE [Suspect]
     Active Substance: AMIKACIN SULFATE
     Indication: Sepsis
     Dosage: 814 MILLIGRAM, QD
     Route: 042
     Dates: start: 20220203, end: 20220206
  4. AMIKACIN SULFATE [Suspect]
     Active Substance: AMIKACIN SULFATE
     Indication: Sepsis
     Dosage: 600 MILLIGRAM, QD
     Dates: start: 20211229, end: 20220102
  5. RITUXIMAB [Suspect]
     Active Substance: RITUXIMAB
     Indication: Diffuse large B-cell lymphoma stage IV
     Dosage: 375 MILLIGRAM/SQ. METER, CYCLE
     Route: 042
     Dates: start: 20211223, end: 20220110
  6. AMINO ACIDS\DEXTROSE\ELECTROLYTES NOS [Suspect]
     Active Substance: AMINO ACIDS\DEXTROSE\ELECTROLYTES NOS
     Indication: Starvation
     Dosage: 1500 MILLILITER, QD
     Route: 042
     Dates: start: 20220102, end: 20220110
  7. CYTARABINE [Suspect]
     Active Substance: CYTARABINE
     Indication: Diffuse large B-cell lymphoma stage IV
     Dosage: 3000 MILLIGRAM/SQ. METER, QOD
     Route: 042
     Dates: start: 20220129, end: 20220201
  8. VINCRISTINE [Suspect]
     Active Substance: VINCRISTINE
     Indication: Diffuse large B-cell lymphoma stage IV
     Dosage: 1 MILLIGRAM/SQ. METER, CYCLE
     Route: 042
     Dates: start: 20211219, end: 20220110
  9. CYCLOPHOSPHAMIDE [Suspect]
     Active Substance: CYCLOPHOSPHAMIDE
     Indication: Diffuse large B-cell lymphoma stage IV
     Dosage: 300 MILLIGRAM/SQ. METER, Q3D
     Route: 042
     Dates: start: 20211219, end: 20211226
  10. CYTARABINE [Suspect]
     Active Substance: CYTARABINE
     Indication: Diffuse large B-cell lymphoma stage IV
     Dosage: 30 MILLIGRAM, QOD
     Route: 037
     Dates: start: 20211221, end: 20220128
  11. MIDAZOLAM [Concomitant]
     Active Substance: MIDAZOLAM
     Indication: Sedation
     Dosage: 20 MICROGRAM/KILOGRAM, QH
     Route: 042
     Dates: start: 20211223, end: 20211227
  12. AMBISOME [Concomitant]
     Active Substance: AMPHOTERICIN B
     Indication: Febrile bone marrow aplasia
     Dosage: 120 MILLIGRAM, QD
     Route: 048
     Dates: start: 20220207, end: 20220211
  13. PIPERACILLIN SODIUM\TAZOBACTAM SODIUM [Concomitant]
     Active Substance: PIPERACILLIN SODIUM\TAZOBACTAM SODIUM
     Indication: Sepsis
     Dosage: 3600 MILLIGRAM, Q8H
     Route: 042
     Dates: start: 20211230, end: 20220108
  14. PREDNISONE [Concomitant]
     Active Substance: PREDNISONE
     Indication: Diffuse large B-cell lymphoma stage IV
     Dosage: 80 MILLIGRAM, QD
     Route: 048
     Dates: start: 20211219, end: 20220201
  15. SUFENTANIL [Concomitant]
     Active Substance: SUFENTANIL
     Indication: Sedation
     Dosage: 0.2 MICROGRAM/KILOGRAM, QH
     Route: 042
     Dates: start: 20211223, end: 20211227
  16. HYDROCORTISONE ACETATE [Concomitant]
     Active Substance: HYDROCORTISONE ACETATE
     Indication: Diffuse large B-cell lymphoma stage IV
     Dosage: 15 MILLIGRAM, QOD
     Route: 022
     Dates: start: 20211219, end: 20211229
  17. KEPPRA [Concomitant]
     Active Substance: LEVETIRACETAM
     Indication: Epilepsy
     Dosage: 900 MILLIGRAM, BID
     Route: 042
     Dates: start: 20211223

REACTIONS (1)
  - Radiculopathy [Not Recovered/Not Resolved]

NARRATIVE: CASE EVENT DATE: 20220128
